FAERS Safety Report 4492628-8 (Version None)
Quarter: 2004Q4

REPORT INFORMATION
  Report Type: 
  Country: None (occurrence: None)
  Receive Date: 20041029
  Receipt Date: 20041021
  Transmission Date: 20050328
  Serious: Yes (Other)
  Sender: FDA-Public Use
  Company Number: 200411009BVD

PATIENT
  Sex: Female

DRUGS (1)
  1. AVELOX [Suspect]

REACTIONS (2)
  - CARDIAC DISORDER [None]
  - NERVOUS SYSTEM DISORDER [None]
